FAERS Safety Report 5513872-4 (Version None)
Quarter: 2007Q4

REPORT INFORMATION
  Report Type: 
  Country: None (occurrence: None)
  Receive Date: 20071109
  Receipt Date: 20071109
  Transmission Date: 20080405
  Serious: Yes (Life-Threatening, Hospitalization)
  Sender: FDA-Public Use
  Company Number: None

PATIENT
  Sex: Female
  Weight: 45.3597 kg

DRUGS (1)
  1. CELLCEPT [Suspect]
     Indication: MYASTHENIA GRAVIS
     Dosage: VARIED DOSAGE EVERY DAY PO
     Route: 048
     Dates: start: 20010101, end: 20070401

REACTIONS (7)
  - IMPAIRED HEALING [None]
  - LOWER RESPIRATORY TRACT INFECTION [None]
  - LYMPHOMA [None]
  - MALAISE [None]
  - PNEUMONIA [None]
  - SKIN ULCER [None]
  - TOOTH LOSS [None]
